FAERS Safety Report 12240607 (Version 2)
Quarter: 2016Q2

REPORT INFORMATION
  Report Type: Report from Study
  Country: RU (occurrence: RU)
  Receive Date: 20160406
  Receipt Date: 20160415
  Transmission Date: 20160815
  Serious: Yes (Other)
  Sender: FDA-Public Use
  Company Number: RU-ROCHE-1735179

PATIENT

DRUGS (5)
  1. FLUOROURACIL. [Suspect]
     Active Substance: FLUOROURACIL
     Route: 042
  2. BEVACIZUMAB [Suspect]
     Active Substance: BEVACIZUMAB
     Indication: COLORECTAL CANCER
     Route: 042
  3. CALCIUM FOLINATE [Suspect]
     Active Substance: LEUCOVORIN CALCIUM
     Indication: COLORECTAL CANCER
     Dosage: 1 AND 2 DAYS OF CYCLE
     Route: 041
  4. FLUOROURACIL. [Suspect]
     Active Substance: FLUOROURACIL
     Indication: COLORECTAL CANCER
     Dosage: 1 AND 2 DAYS OF CYCLE
     Route: 040
  5. OXALIPLATIN. [Suspect]
     Active Substance: OXALIPLATIN
     Indication: COLORECTAL CANCER
     Dosage: 2 HOUR INFUSION
     Route: 042

REACTIONS (9)
  - Peripheral sensory neuropathy [Unknown]
  - Mucosal inflammation [Unknown]
  - Neutropenia [Unknown]
  - Hypertension [Unknown]
  - Asthenia [Unknown]
  - Proteinuria [Unknown]
  - Anaemia [Unknown]
  - Diarrhoea [Unknown]
  - Haemorrhage [Unknown]
